FAERS Safety Report 15339675 (Version 1)
Quarter: 2018Q3

REPORT INFORMATION
  Report Type: Spontaneous
  Country: US (occurrence: US)
  Receive Date: 20180831
  Receipt Date: 20180831
  Transmission Date: 20181010
  Serious: No
  Sender: FDA-Public Use
  Company Number: US-BEH-2018094387

PATIENT
  Age: 78 Year
  Sex: Female

DRUGS (15)
  1. KALBITOR [Concomitant]
     Active Substance: ECALLANTIDE
  2. HYDROCODONE BITARTRATE AND ACETAMINOPHEN [Concomitant]
     Active Substance: ACETAMINOPHEN\HYDROCODONE BITARTRATE
  3. CHLORHEXIDINE GLUCONATE. [Concomitant]
     Active Substance: CHLORHEXIDINE GLUCONATE
  4. FLUTICASONE PROPIONATE. [Concomitant]
     Active Substance: FLUTICASONE PROPIONATE
  5. CLOPIDOGREL [Concomitant]
     Active Substance: CLOPIDOGREL BISULFATE
  6. SERTRALINE HCL [Concomitant]
     Active Substance: SERTRALINE HYDROCHLORIDE
  7. AMOXICILLIN. [Concomitant]
     Active Substance: AMOXICILLIN
  8. PROAIR HFA [Concomitant]
     Active Substance: ALBUTEROL SULFATE
  9. METRONIDAZOL                       /00012501/ [Concomitant]
     Active Substance: METRONIDAZOLE
     Dosage: 500 MG, UNK
     Route: 065
  10. HAEGARDA [Suspect]
     Active Substance: HUMAN C1-ESTERASE INHIBITOR
     Indication: HEREDITARY ANGIOEDEMA
     Dosage: 4000 IU (2 X 2000 UNITS), BIW
     Route: 058
     Dates: start: 201803
  11. HAEGARDA [Suspect]
     Active Substance: HUMAN C1-ESTERASE INHIBITOR
     Indication: PROPHYLAXIS
  12. MONTELUKAST SODIUM. [Concomitant]
     Active Substance: MONTELUKAST SODIUM
  13. TRAZODONE HYDROCHLORIDE. [Concomitant]
     Active Substance: TRAZODONE HYDROCHLORIDE
  14. OMEPRAZOLE. [Concomitant]
     Active Substance: OMEPRAZOLE
  15. EPIPEN [Concomitant]
     Active Substance: EPINEPHRINE

REACTIONS (4)
  - Erythema [Unknown]
  - Skin discolouration [Unknown]
  - Pruritus [Unknown]
  - Blister [Unknown]

NARRATIVE: CASE EVENT DATE: 20180823
